FAERS Safety Report 6030857-2 (Version None)
Quarter: 2009Q1

REPORT INFORMATION
  Report Type: 
  Country: None (occurrence: None)
  Receive Date: 20090106
  Receipt Date: 20081219
  Transmission Date: 20090719
  Serious: Yes (Death)
  Sender: FDA-Public Use
  Company Number: KV200801345

PATIENT
  Age: 91 Year
  Sex: Female

DRUGS (3)
  1. MORPHINE SULFATE [Suspect]
     Indication: CANCER PAIN
     Dosage: 15 MG, 1/2-1-2X DAY, ORAL
     Route: 048
     Dates: start: 20070407, end: 20070409
  2. ASPIRIN [Concomitant]
  3. FOSAMAX [Concomitant]

REACTIONS (5)
  - DISEASE PROGRESSION [None]
  - HYPOPHAGIA [None]
  - LETHARGY [None]
  - LUNG NEOPLASM MALIGNANT [None]
  - PRODUCT QUALITY ISSUE [None]
